FAERS Safety Report 7049182-6 (Version None)
Quarter: 2010Q4

REPORT INFORMATION
  Report Type: 
  Country: None (occurrence: None)
  Receive Date: 20101012
  Receipt Date: 20101004
  Transmission Date: 20110411
  Serious: Yes (Other)
  Sender: FDA-Public Use
  Company Number: 019049

PATIENT
  Sex: Male

DRUGS (3)
  1. NEUPRO [Suspect]
     Indication: PARKINSON'S DISEASE
     Dosage: (TRANSDERMAL) ; (16 MG QD TRANSDERMAL) ; (6 MG QD TRANSDERMAL)
     Route: 062
     Dates: start: 20090101, end: 20100101
  2. NEUPRO [Suspect]
     Indication: PARKINSON'S DISEASE
     Dosage: (TRANSDERMAL) ; (16 MG QD TRANSDERMAL) ; (6 MG QD TRANSDERMAL)
     Route: 062
     Dates: start: 20100101
  3. SINEMET [Concomitant]

REACTIONS (2)
  - HYPERSEXUALITY [None]
  - PATHOLOGICAL GAMBLING [None]
